FAERS Safety Report 23236597 (Version 1)
Quarter: 2023Q4

REPORT INFORMATION
  Report Type: Report from Study
  Country: AU (occurrence: AU)
  Receive Date: 20231128
  Receipt Date: 20231128
  Transmission Date: 20240110
  Serious: Yes (Other)
  Sender: FDA-Public Use
  Company Number: AU-002147023-NVSC2022AU257532

PATIENT
  Sex: Male

DRUGS (1)
  1. MAYZENT [Suspect]
     Active Substance: SIPONIMOD
     Indication: Secondary progressive multiple sclerosis
     Dosage: 2 MG, QD
     Route: 048
     Dates: start: 20221110

REACTIONS (11)
  - Lower respiratory tract infection [Unknown]
  - Arthralgia [Unknown]
  - Hypokinesia [Recovering/Resolving]
  - Hypoaesthesia [Unknown]
  - Burning sensation [Unknown]
  - Paraesthesia [Unknown]
  - Pain in extremity [Recovering/Resolving]
  - Herpes zoster [Unknown]
  - Insomnia [Unknown]
  - Fatigue [Unknown]
  - Constipation [Unknown]
